FAERS Safety Report 14688853 (Version 1)
Quarter: 2018Q1

REPORT INFORMATION
  Report Type: Report from Study
  Country: AU (occurrence: AU)
  Receive Date: 20180328
  Receipt Date: 20180328
  Transmission Date: 20180509
  Serious: Yes (Hospitalization)
  Sender: FDA-Public Use
  Company Number: PHHO2017AU015377

PATIENT
  Age: 56 Year
  Sex: Female
  Weight: 98 kg

DRUGS (3)
  1. PREDNISOLONE. [Concomitant]
     Active Substance: PREDNISOLONE
     Indication: PRODUCT USED FOR UNKNOWN INDICATION
     Route: 065
  2. ASPIRIN. [Concomitant]
     Active Substance: ASPIRIN
     Indication: CORONARY ARTERY DISEASE
     Dosage: 100 MG, UNK
     Route: 065
     Dates: start: 20040101
  3. ACZ885 [Suspect]
     Active Substance: CANAKINUMAB
     Indication: CARDIOVASCULAR EVENT PROPHYLAXIS
     Dosage: 50 MG, QUARTERLY
     Route: 058

REACTIONS (4)
  - Acute pulmonary oedema [Recovered/Resolved]
  - Pneumonia [Recovered/Resolved]
  - Acute myocardial infarction [Recovered/Resolved]
  - Vitreous haemorrhage [Recovered/Resolved]

NARRATIVE: CASE EVENT DATE: 20171014
